FAERS Safety Report 7866089-2 (Version None)
Quarter: 2011Q4

REPORT INFORMATION
  Report Type: 
  Country: None (occurrence: None)
  Receive Date: 20111028
  Receipt Date: 20110420
  Transmission Date: 20120403
  Serious: No
  Sender: FDA-Public Use
  Company Number: US-GLAXOSMITHKLINE-A0923787A

PATIENT
  Age: 72 Year
  Sex: Female

DRUGS (3)
  1. SPIRIVA [Concomitant]
  2. OXYGEN [Concomitant]
  3. ADVAIR DISKUS 100/50 [Suspect]
     Indication: CHRONIC OBSTRUCTIVE PULMONARY DISEASE
     Dosage: 1PUFF TWICE PER DAY
     Route: 055
     Dates: start: 20081201, end: 20100401

REACTIONS (2)
  - DENTAL CARIES [None]
  - ALOPECIA [None]
